FAERS Safety Report 4795387-4 (Version None)
Quarter: 2005Q4

REPORT INFORMATION
  Report Type: 
  Country: None (occurrence: None)
  Receive Date: 20051012
  Receipt Date: 20050706
  Transmission Date: 20060501
  Serious: Yes (Other)
  Sender: FDA-Public Use
  Company Number: 2005GB01302

PATIENT
  Age: 31 Year
  Sex: Female
  Weight: 100 kg

DRUGS (6)
  1. SEROQUEL [Suspect]
     Indication: SCHIZOPHRENIA
     Route: 048
     Dates: start: 20041104
  2. SEROQUEL [Suspect]
     Route: 048
     Dates: start: 20050101
  3. ANAFRANIL [Suspect]
     Indication: SCHIZOAFFECTIVE DISORDER
     Route: 048
     Dates: start: 20041104
  4. ANAFRANIL [Suspect]
     Route: 048
     Dates: start: 20050101
  5. NORMISON [Suspect]
     Indication: INSOMNIA
     Dates: start: 20041101, end: 20041206
  6. CLOZARIL [Suspect]
     Route: 048
     Dates: start: 20040501

REACTIONS (4)
  - HYPERGLYCAEMIA [None]
  - LIVER FUNCTION TEST ABNORMAL [None]
  - MICROCYTIC ANAEMIA [None]
  - WHITE BLOOD CELL COUNT DECREASED [None]
